FAERS Safety Report 7170527-0 (Version None)
Quarter: 2010Q4

REPORT INFORMATION
  Report Type: 
  Country: None (occurrence: None)
  Receive Date: 20101217
  Receipt Date: 20101207
  Transmission Date: 20110411
  Serious: Yes (Congenital Anomaly, Other)
  Sender: FDA-Public Use
  Company Number: PHHY2010DE83609

PATIENT

DRUGS (2)
  1. SANDOSTATIN [Suspect]
     Dosage: 1440 UG/D
     Route: 064
     Dates: start: 20090101
  2. DIAZOXIDE [Concomitant]
     Route: 064

REACTIONS (5)
  - BONE DISORDER [None]
  - DRUG EXPOSURE DURING PREGNANCY [None]
  - HYPERINSULINISM [None]
  - HYPOGLYCAEMIA [None]
  - SMALL FOR DATES BABY [None]
